FAERS Safety Report 6276380-1 (Version None)
Quarter: 2009Q3

REPORT INFORMATION
  Report Type: 
  Country: None (occurrence: None)
  Receive Date: 20090717
  Receipt Date: 20090219
  Transmission Date: 20100115
  Serious: No
  Sender: FDA-Public Use
  Company Number: 181491

PATIENT
  Sex: Female

DRUGS (1)
  1. MILRINONE LACTATE [Suspect]
     Dosage: 100 ML, ONCE, INTRAVENOUS
     Route: 042
     Dates: start: 20090207, end: 20090207

REACTIONS (1)
  - TACHYCARDIA [None]
